FAERS Safety Report 22252710 (Version 1)
Quarter: 2023Q2

REPORT INFORMATION
  Report Type: Spontaneous
  Country: US (occurrence: None)
  Receive Date: 20230426
  Receipt Date: 20230426
  Transmission Date: 20230722
  Serious: No
  Sender: FDA-Public Use
  Company Number: US-Ultragenyx Pharmaceutical Inc.-US-UGNX-23-00015

PATIENT
  Sex: Female
  Weight: 72.6 kg

DRUGS (3)
  1. DOJOLVI [Suspect]
     Active Substance: TRIHEPTANOIN
     Indication: Carnitine palmitoyltransferase deficiency
     Route: 048
     Dates: start: 20221123
  2. DOJOLVI [Suspect]
     Active Substance: TRIHEPTANOIN
     Route: 048
     Dates: start: 20221210
  3. DOJOLVI [Suspect]
     Active Substance: TRIHEPTANOIN
     Route: 048
     Dates: start: 20221123, end: 20230208

REACTIONS (1)
  - Myalgia [Recovered/Resolved]
